FAERS Safety Report 19955015 (Version 1)
Quarter: 2021Q4

REPORT INFORMATION
  Report Type: Spontaneous
  Country: US (occurrence: US)
  Receive Date: 20211014
  Receipt Date: 20211014
  Transmission Date: 20220303
  Serious: Yes (Other)
  Sender: FDA-Public Use
  Company Number: US-ACCORD-241092

PATIENT
  Age: 57 Year
  Sex: Female
  Weight: 70.31 kg

DRUGS (1)
  1. CLONAZEPAM [Suspect]
     Active Substance: CLONAZEPAM
     Indication: Depression
     Dosage: DOSE: 1MG/1/2 TABLET /TWICE A DAY

REACTIONS (8)
  - Chronic kidney disease [Unknown]
  - Hepatic steatosis [Unknown]
  - Parathyroid disorder [Unknown]
  - Wrong technique in product usage process [Unknown]
  - Anxiety [Unknown]
  - Depression [Unknown]
  - Tooth abscess [Unknown]
  - Product dispensing error [Unknown]

NARRATIVE: CASE EVENT DATE: 20210101
